FAERS Safety Report 24951375 (Version 1)
Quarter: 2025Q1

REPORT INFORMATION
  Report Type: Spontaneous
  Country: CZ (occurrence: CZ)
  Receive Date: 20250210
  Receipt Date: 20250210
  Transmission Date: 20250409
  Serious: Yes (Other)
  Sender: MYLAN
  Company Number: CZ-GLENMARK PHARMACEUTICALS-2025GMK097424

PATIENT
  Sex: Female

DRUGS (2)
  1. PREGABALIN [Suspect]
     Active Substance: PREGABALIN
     Indication: Product used for unknown indication
     Dosage: QD, DOSE: 750 TO 1000 MG IN A SINGLE DAILY DOSE, START DATE: FOR ABOUT THREE YEARS
     Route: 065
  2. PREGABALIN [Suspect]
     Active Substance: PREGABALIN
     Route: 065

REACTIONS (9)
  - Drug abuse [Unknown]
  - Drug dependence [Unknown]
  - Conjunctival hyperaemia [Unknown]
  - Tension [Unknown]
  - Tremor [Unknown]
  - Hyperhidrosis [Unknown]
  - Anxiety [Unknown]
  - Insomnia [Unknown]
  - Withdrawal syndrome [Unknown]
